FAERS Safety Report 5757081-2 (Version None)
Quarter: 2008Q2

REPORT INFORMATION
  Report Type: 
  Country: None (occurrence: None)
  Receive Date: 20080603
  Receipt Date: 20080523
  Transmission Date: 20081010
  Serious: Yes (Life-Threatening, Hospitalization)
  Sender: FDA-Public Use
  Company Number: B0522599A

PATIENT
  Age: 13 Year
  Sex: Male
  Weight: 50 kg

DRUGS (12)
  1. TRACRIUM [Suspect]
     Dosage: 20MG PER DAY
     Route: 042
     Dates: start: 20080305, end: 20080305
  2. HETASTARCH + SODIUM CHLORIDE [Suspect]
     Indication: DRUG USE FOR UNKNOWN INDICATION
     Route: 040
     Dates: start: 20080305, end: 20080305
  3. KEFZOL [Suspect]
     Indication: DRUG USE FOR UNKNOWN INDICATION
     Route: 042
     Dates: start: 20080305, end: 20080305
  4. HEPARIN SODIUM [Suspect]
     Indication: DRUG USE FOR UNKNOWN INDICATION
     Route: 065
     Dates: start: 20080305, end: 20080305
  5. HEPARIN [Suspect]
     Indication: DRUG USE FOR UNKNOWN INDICATION
     Route: 065
     Dates: start: 20080305, end: 20080305
  6. THIOPENTAL SODIUM [Concomitant]
     Route: 065
  7. FENTANYL-100 [Concomitant]
     Route: 065
  8. ULTIVA [Concomitant]
     Route: 065
  9. INTUBATION [Concomitant]
     Route: 065
  10. SEVOFLURANE [Concomitant]
     Route: 055
  11. VENTILATION [Concomitant]
     Route: 065
  12. OXYGEN [Concomitant]
     Route: 065

REACTIONS (11)
  - ANAPHYLACTIC SHOCK [None]
  - BLOOD PRESSURE DECREASED [None]
  - FACE OEDEMA [None]
  - HAEMODYNAMIC INSTABILITY [None]
  - LOCAL SWELLING [None]
  - OEDEMA PERIPHERAL [None]
  - RASH [None]
  - SKIN DISCOLOURATION [None]
  - SWELLING FACE [None]
  - TACHYCARDIA [None]
  - TYPE I HYPERSENSITIVITY [None]
